FAERS Safety Report 21513008 (Version 11)
Quarter: 2025Q4

REPORT INFORMATION
  Report Type: Report from Study
  Country: US (occurrence: US)
  Receive Date: 20221027
  Receipt Date: 20251121
  Transmission Date: 20260117
  Serious: Yes (Hospitalization, Other)
  Sender: TAKEDA
  Company Number: US-TAKEDA-2021TUS050402

PATIENT
  Age: 64 Year
  Sex: Female
  Weight: 73 kg

DRUGS (22)
  1. LANADELUMAB [Suspect]
     Active Substance: LANADELUMAB
     Indication: Depression
     Dosage: 300 MILLIGRAM, Q2WEEKS
  2. LANADELUMAB [Suspect]
     Active Substance: LANADELUMAB
     Indication: Immune system disorder
  3. LANADELUMAB [Suspect]
     Active Substance: LANADELUMAB
     Indication: Osteoarthritis
  4. LANADELUMAB [Suspect]
     Active Substance: LANADELUMAB
     Indication: Sleep disorder
  5. LANADELUMAB [Suspect]
     Active Substance: LANADELUMAB
     Indication: Dyssomnia
  6. LANADELUMAB [Suspect]
     Active Substance: LANADELUMAB
     Indication: Enzyme abnormality
  7. FIRAZYR [Suspect]
     Active Substance: ICATIBANT ACETATE
     Indication: Depression
     Dosage: 30 MILLIGRAM
  8. FIRAZYR [Suspect]
     Active Substance: ICATIBANT ACETATE
     Indication: Immune system disorder
  9. FIRAZYR [Suspect]
     Active Substance: ICATIBANT ACETATE
     Indication: Osteoarthritis
  10. FIRAZYR [Suspect]
     Active Substance: ICATIBANT ACETATE
     Indication: Dyssomnia
  11. FIRAZYR [Suspect]
     Active Substance: ICATIBANT ACETATE
     Indication: Sleep disorder
  12. FIRAZYR [Suspect]
     Active Substance: ICATIBANT ACETATE
     Indication: Enzyme abnormality
  13. CALTRATE WITH VITAMIN D [Concomitant]
     Active Substance: CALCIUM CARBONATE\CHOLECALCIFEROL
     Dosage: UNK
  14. NORCO [Concomitant]
     Active Substance: ACETAMINOPHEN\HYDROCODONE BITARTRATE
     Dosage: UNK
  15. ADDERALL [Concomitant]
     Active Substance: AMPHETAMINE ASPARTATE\AMPHETAMINE SULFATE\DEXTROAMPHETAMINE SACCHARATE\DEXTROAMPHETAMINE SULFATE
     Dosage: UNK
  16. LEVOTHYROXINE SODIUM [Concomitant]
     Active Substance: LEVOTHYROXINE SODIUM
     Dosage: UNK
  17. METHADONE [Concomitant]
     Active Substance: METHADONE HYDROCHLORIDE
     Dosage: UNK
  18. HYDROCODONE [Concomitant]
     Active Substance: HYDROCODONE
     Dosage: UNK
  19. ACETAMINOPHEN [Concomitant]
     Active Substance: ACETAMINOPHEN
     Dosage: UNK
  20. WELLBUTRIN XL [Concomitant]
     Active Substance: BUPROPION HYDROCHLORIDE
     Dosage: UNK
  21. METHADONE HYDROCHLORIDE [Concomitant]
     Active Substance: METHADONE HYDROCHLORIDE
     Dosage: UNK
  22. ACETAMINOPHEN\HYDROCODONE [Concomitant]
     Active Substance: ACETAMINOPHEN\HYDROCODONE
     Dosage: UNK

REACTIONS (10)
  - Neoplasm malignant [Unknown]
  - Epistaxis [Unknown]
  - Stress [Unknown]
  - Scar [Unknown]
  - Product dose omission issue [Unknown]
  - Illness [Unknown]
  - Product use issue [Unknown]
  - Dermatitis contact [Unknown]
  - Hereditary angioedema [Unknown]
  - Injection site pain [Unknown]
